FAERS Safety Report 10913693 (Version 2)
Quarter: 2015Q2

REPORT INFORMATION
  Report Type: Spontaneous
  Country: SE (occurrence: SE)
  Receive Date: 20150313
  Receipt Date: 20150408
  Transmission Date: 20150821
  Serious: Yes (Hospitalization, Other)
  Sender: FDA-Public Use
  Company Number: SE-BAYER-2015-035404

PATIENT
  Sex: Male

DRUGS (10)
  1. ONDANSETRON [Concomitant]
     Active Substance: ONDANSETRON
     Indication: PROPHYLAXIS OF NAUSEA AND VOMITING
  2. OMEPRAZOL [Concomitant]
     Active Substance: OMEPRAZOLE
  3. METOCLOPRAMIDE. [Concomitant]
     Active Substance: METOCLOPRAMIDE
  4. LAKTULOS [Concomitant]
     Dosage: UNK UNK, PRN
  5. XOFIGO [Suspect]
     Active Substance: RADIUM RA-223 DICHLORIDE
     Indication: METASTASES TO BONE
     Dosage: 50 KBQ/KG (3000 KBQ)
     Route: 042
     Dates: start: 20150127, end: 20150127
  6. XGEVA [Concomitant]
     Active Substance: DENOSUMAB
     Dosage: UNK, Q4WK
  7. SUPREFACT [Concomitant]
     Active Substance: BUSERELIN
  8. XOFIGO [Suspect]
     Active Substance: RADIUM RA-223 DICHLORIDE
     Indication: PROSTATE CANCER STAGE IV
     Dosage: 50 KBQ/KG (3000 KBQ)
     Route: 042
     Dates: start: 20141231, end: 20141231
  9. CALCICHEW [Concomitant]
     Active Substance: CALCIUM CARBONATE
  10. BETAPRED [Concomitant]
     Active Substance: BETAMETHASONE SODIUM PHOSPHATE
     Indication: PROPHYLAXIS OF NAUSEA AND VOMITING

REACTIONS (7)
  - Feeling abnormal [None]
  - Leukopenia [Recovered/Resolved]
  - Decreased appetite [None]
  - Platelet count decreased [None]
  - Pyrexia [Recovered/Resolved]
  - Prostate cancer stage IV [None]
  - Nausea [None]

NARRATIVE: CASE EVENT DATE: 2015
